FAERS Safety Report 21105342 (Version 1)
Quarter: 2022Q3

REPORT INFORMATION
  Report Type: Spontaneous
  Country: US (occurrence: None)
  Receive Date: 20220719
  Receipt Date: 20220719
  Transmission Date: 20221027
  Serious: Yes (Hospitalization)
  Sender: FDA-Public Use
  Company Number: None

PATIENT
  Age: 79 Year
  Sex: Female
  Weight: 78 kg

DRUGS (2)
  1. PAXLOVID [Suspect]
     Active Substance: NIRMATRELVIR\RITONAVIR
  2. NIFEDIPINE [Suspect]
     Active Substance: NIFEDIPINE

REACTIONS (3)
  - Drug interaction [None]
  - Oedema [None]
  - Acute kidney injury [None]

NARRATIVE: CASE EVENT DATE: 20220712
